FAERS Safety Report 9775939 (Version 1)
Quarter: 2013Q4

REPORT INFORMATION
  Report Type: Spontaneous
  Country: AU (occurrence: AU)
  Receive Date: 20131220
  Receipt Date: 20131220
  Transmission Date: 20140711
  Serious: Yes (Hospitalization, Other)
  Sender: FDA-Public Use
  Company Number: AU-009507513-1312AUS008522

PATIENT
  Age: 13 Year
  Sex: Female

DRUGS (6)
  1. ROCURONIUM BROMIDE [Suspect]
     Dosage: UNK
     Dates: start: 20121004
  2. EPINEPHRINE [Concomitant]
     Dosage: 1 MG, ONCE
  3. ATROPINE SULFATE [Concomitant]
     Dosage: 600 MICROGRAM, UNK
     Route: 042
  4. CEFAZOLIN SODIUM [Concomitant]
     Dosage: 1000 MILLIGRAM 1 TIME
     Route: 042
  5. NITROUS OXIDE [Concomitant]
     Dosage: UNK
     Route: 055
  6. PROPOFOL [Concomitant]
     Dosage: 500 MICROGRAM, UNK
     Route: 042

REACTIONS (4)
  - Embolism [Recovered/Resolved]
  - Cardiac arrest [Recovered/Resolved]
  - Cardiac arrest [Recovered/Resolved]
  - Anaphylactic reaction [Recovered/Resolved]
